FAERS Safety Report 10063722 (Version 1)
Quarter: 2014Q2

REPORT INFORMATION
  Report Type: Spontaneous
  Country: CO (occurrence: CO)
  Receive Date: 20140407
  Receipt Date: 20140407
  Transmission Date: 20141212
  Serious: Yes (Other)
  Sender: FDA-Public Use
  Company Number: CO-UCBSA-117008

PATIENT
  Age: 55 Year
  Sex: Female

DRUGS (4)
  1. CIMZIA [Suspect]
     Indication: RHEUMATOID ARTHRITIS
     Route: 058
     Dates: start: 20120815, end: 20140205
  2. PREDNISOLONE [Concomitant]
  3. WARFARIN [Concomitant]
     Dosage: 5 MG DAILY
  4. PROTOS [Concomitant]
     Dosage: 2000 MG DAILY SINCE 9 MONTHS AGO
     Dates: start: 2013

REACTIONS (3)
  - Accident [Unknown]
  - Haematoma [Recovering/Resolving]
  - Wound [Recovering/Resolving]
